FAERS Safety Report 21132564 (Version 9)
Quarter: 2023Q1

REPORT INFORMATION
  Report Type: Report from Study
  Country: CO (occurrence: CO)
  Receive Date: 20220726
  Receipt Date: 20230108
  Transmission Date: 20230417
  Serious: Yes (Death, Hospitalization, Other)
  Sender: FDA-Public Use
  Company Number: CO-NOVARTISPH-NVSC2022CO166234

PATIENT
  Sex: Female

DRUGS (4)
  1. KISQALI [Suspect]
     Active Substance: RIBOCICLIB
     Indication: Hormone receptor positive HER2 negative breast cancer
     Dosage: 3 DOSAGE FORM, QD (3 TABLETS A QD)
     Route: 048
  2. KISQALI [Suspect]
     Active Substance: RIBOCICLIB
     Dosage: 600 MG, QD
     Route: 048
  3. KISQALI [Suspect]
     Active Substance: RIBOCICLIB
     Dosage: UNK
     Route: 048
  4. FULVESTRANT [Suspect]
     Active Substance: FULVESTRANT
     Indication: Product used for unknown indication
     Dosage: UNK
     Route: 065

REACTIONS (15)
  - Death [Fatal]
  - Speech disorder [Unknown]
  - Pain [Unknown]
  - Somnolence [Unknown]
  - Confusional state [Unknown]
  - Body temperature decreased [Not Recovered/Not Resolved]
  - Ischaemia [Unknown]
  - General physical health deterioration [Unknown]
  - Feeling abnormal [Unknown]
  - Mobility decreased [Unknown]
  - Hypotension [Not Recovered/Not Resolved]
  - Neck pain [Unknown]
  - Asthenia [Unknown]
  - Pyrexia [Unknown]
  - Headache [Unknown]
